FAERS Safety Report 13892727 (Version 1)
Quarter: 2017Q3

REPORT INFORMATION
  Report Type: Spontaneous
  Country: US (occurrence: US)
  Receive Date: 20170822
  Receipt Date: 20170822
  Transmission Date: 20171127
  Serious: Yes (Other)
  Sender: FDA-Public Use
  Company Number: US-VERTEX PHARMACEUTICALS-2017-001506

PATIENT
  Age: 34 Year
  Sex: Female

DRUGS (14)
  1. MYCOPHENOLATE [Concomitant]
     Active Substance: MYCOPHENOLIC ACID
  2. TOBRAMYCIN. [Concomitant]
     Active Substance: TOBRAMYCIN
  3. PREDNISONE. [Concomitant]
     Active Substance: PREDNISONE
  4. PANTOPRAZOLE [Concomitant]
     Active Substance: PANTOPRAZOLE
  5. COLISTIMETHATE [Concomitant]
     Active Substance: COLISTIMETHATE SODIUM
  6. TRETINOIN. [Concomitant]
     Active Substance: TRETINOIN
  7. PULMOZYME [Concomitant]
     Active Substance: DORNASE ALFA
  8. FLUCONAZOLE. [Concomitant]
     Active Substance: FLUCONAZOLE
  9. OXYCODONE [Concomitant]
     Active Substance: OXYCODONE
  10. KALYDECO [Suspect]
     Active Substance: IVACAFTOR
     Indication: CYSTIC FIBROSIS
     Dosage: 150 MG, BID
     Route: 048
     Dates: start: 20150209, end: 2017
  11. KALYDECO [Suspect]
     Active Substance: IVACAFTOR
     Dosage: UNK
     Route: 048
     Dates: start: 20170817
  12. ATOVAQUONE. [Concomitant]
     Active Substance: ATOVAQUONE
  13. VALCYTE [Concomitant]
     Active Substance: VALGANCICLOVIR HYDROCHLORIDE
  14. ONDANSETRON [Concomitant]
     Active Substance: ONDANSETRON

REACTIONS (1)
  - Lung transplant [Unknown]

NARRATIVE: CASE EVENT DATE: 201705
